FAERS Safety Report 9343177 (Version 2)
Quarter: 2013Q3

REPORT INFORMATION
  Report Type: Spontaneous
  Country: US (occurrence: US)
  Receive Date: 20130611
  Receipt Date: 20130724
  Transmission Date: 20140515
  Serious: No
  Sender: FDA-Public Use
  Company Number: US-009507513-1305USA010867

PATIENT
  Age: 9 Year
  Sex: Female

DRUGS (3)
  1. DULERA [Suspect]
     Indication: ASTHMA
     Dosage: 2 PUFFS, BID, INHALER
     Route: 055
     Dates: start: 20130307, end: 20130511
  2. LORATADINE [Concomitant]
  3. PROAIR (ALBUTEROL SULFATE) [Concomitant]

REACTIONS (6)
  - Anxiety [Not Recovered/Not Resolved]
  - Thinking abnormal [Not Recovered/Not Resolved]
  - Crying [Not Recovered/Not Resolved]
  - Discomfort [Unknown]
  - Drug ineffective [Unknown]
  - Nervousness [Not Recovered/Not Resolved]
